FAERS Safety Report 16802238 (Version 3)
Quarter: 2019Q4

REPORT INFORMATION
  Report Type: Report from Study
  Country: US (occurrence: US)
  Receive Date: 20190912
  Receipt Date: 20191212
  Transmission Date: 20200122
  Serious: No
  Sender: FDA-Public Use
  Company Number: PHEH2019US037826

PATIENT
  Age: 47 Year
  Sex: Female

DRUGS (1)
  1. GILENYA [Suspect]
     Active Substance: FINGOLIMOD HYDROCHLORIDE
     Indication: RELAPSING MULTIPLE SCLEROSIS
     Dosage: 0.5 MG, QD
     Route: 048
     Dates: start: 20190910

REACTIONS (8)
  - Somnolence [Recovered/Resolved]
  - Tongue disorder [Unknown]
  - Sluggishness [Recovered/Resolved]
  - Anxiety [Unknown]
  - Heart rate decreased [Unknown]
  - Chest pain [Unknown]
  - Abdominal distension [Unknown]
  - Feeling jittery [Unknown]

NARRATIVE: CASE EVENT DATE: 201909
